FAERS Safety Report 7198569-X (Version None)
Quarter: 2010Q4

REPORT INFORMATION
  Report Type: 
  Country: None (occurrence: None)
  Receive Date: 20101227
  Receipt Date: 20101220
  Transmission Date: 20110411
  Serious: Yes (Life-Threatening, Hospitalization)
  Sender: FDA-Public Use
  Company Number: GB-JNJFOC-20101206920

PATIENT
  Age: 43 Year
  Sex: Female
  Weight: 64.5 kg

DRUGS (3)
  1. IBUPROFEN [Suspect]
     Indication: ABDOMINAL PAIN UPPER
     Route: 048
  2. IBUPROFEN [Suspect]
     Indication: CHEST PAIN
     Route: 048
  3. ACETAMINOPHEN [Concomitant]
     Indication: PRODUCT USED FOR UNKNOWN INDICATION
     Route: 048

REACTIONS (2)
  - DUODENAL ULCER PERFORATION [None]
  - GASTRIC HAEMORRHAGE [None]
